FAERS Safety Report 21354840 (Version 1)
Quarter: 2022Q3

REPORT INFORMATION
  Report Type: Spontaneous
  Country: RU (occurrence: RU)
  Receive Date: 20220920
  Receipt Date: 20220920
  Transmission Date: 20221026
  Serious: Yes (Other)
  Sender: FDA-Public Use
  Company Number: RU-BAYER-2022P014316

PATIENT
  Age: 50 Year
  Sex: Female

DRUGS (1)
  1. ANGELIQ [Suspect]
     Active Substance: DROSPIRENONE\ESTRADIOL
     Dosage: 1 TABLET ONCE A DAY
     Route: 048

REACTIONS (3)
  - Blood pressure decreased [Recovered/Resolved]
  - Syncope [None]
  - General physical health deterioration [Recovered/Resolved]
